FAERS Safety Report 5256022-4 (Version None)
Quarter: 2007Q1

REPORT INFORMATION
  Report Type: 
  Country: None (occurrence: None)
  Receive Date: 20070306
  Receipt Date: 20070221
  Transmission Date: 20070707
  Serious: Yes (Hospitalization, Other)
  Sender: FDA-Public Use
  Company Number: PHEH2007US02274

PATIENT
  Age: 65 Year
  Sex: Female

DRUGS (8)
  1. DIOVAN [Suspect]
     Indication: HYPERTENSION
     Dosage: 40 MG, QD
     Route: 048
     Dates: start: 20050101
  2. DIOVAN [Suspect]
     Dosage: 80 MG, QD
     Dates: end: 20060401
  3. DIOVAN [Suspect]
     Dosage: 160 MG, QD
     Route: 048
     Dates: start: 20061201
  4. DIOVAN [Suspect]
     Dosage: 320 MG, QD
     Route: 048
  5. BENICAR [Suspect]
     Indication: HYPERTENSION
     Dosage: 20MG, UNK
     Dates: start: 20060401, end: 20061201
  6. ASPIRIN [Concomitant]
     Dosage: 81MG, UNK
     Dates: start: 20061201
  7. NORVASC [Concomitant]
     Dosage: 10MG, UNK
     Dates: start: 20061201
  8. CADUET [Concomitant]
     Dosage: UNK, UNK

REACTIONS (5)
  - BLOOD PRESSURE SYSTOLIC INCREASED [None]
  - CEREBROVASCULAR ACCIDENT [None]
  - FEELING COLD [None]
  - HEADACHE [None]
  - MUSCULAR WEAKNESS [None]
